FAERS Safety Report 14409333 (Version 1)
Quarter: 2018Q1

REPORT INFORMATION
  Report Type: Report from Study
  Country: None (occurrence: DE)
  Receive Date: 20180119
  Receipt Date: 20180119
  Transmission Date: 20180509
  Serious: Yes (Other)
  Sender: FDA-Public Use
  Company Number: DE-ABBVIE-18K-062-2228386-00

PATIENT
  Age: 73 Year
  Sex: Male

DRUGS (1)
  1. DUODOPA [Suspect]
     Active Substance: CARBIDOPA\LEVODOPA
     Indication: PARKINSON^S DISEASE
     Dosage: MD: 4ML, CRD: 2.5ML/H, CRN: 2ML/H, ED: 1.5ML
     Route: 050
     Dates: start: 20131002

REACTIONS (4)
  - Renal failure [Recovered/Resolved]
  - Hallucination [Recovered/Resolved]
  - Pneumonia [Recovered/Resolved]
  - Device leakage [Unknown]

NARRATIVE: CASE EVENT DATE: 201710
